FAERS Safety Report 19367084 (Version 1)
Quarter: 2021Q2

REPORT INFORMATION
  Report Type: Spontaneous
  Country: BR (occurrence: BR)
  Receive Date: 20210602
  Receipt Date: 20210602
  Transmission Date: 20210717
  Serious: Yes (Other)
  Sender: FDA-Public Use
  Company Number: BR-EISAI MEDICAL RESEARCH-EC-2021-093617

PATIENT
  Age: 89 Year
  Sex: Female
  Weight: 58 kg

DRUGS (3)
  1. LENVIMA [Suspect]
     Active Substance: LENVATINIB
     Dosage: 30 MG/DAY ON MONDAY, WEDNESDAY, FRIDAY; 20 MG/DAY ON TUESDAY AND THURSDAY
     Route: 048
     Dates: start: 20210521, end: 20210527
  2. LENVIMA [Suspect]
     Active Substance: LENVATINIB
     Indication: THYROID CANCER
     Dosage: 12 MG/DAY ON MONDAY, WEDNESDAY, FRIDAY; 8 MG/DAY ON TUESDAY AND THURSDAYS
     Route: 048
  3. LENVIMA [Suspect]
     Active Substance: LENVATINIB
     Route: 048
     Dates: end: 20210520

REACTIONS (4)
  - Product prescribing error [Recovered/Resolved]
  - Jaundice [Not Recovered/Not Resolved]
  - Confusional state [Unknown]
  - Accidental overdose [Recovered/Resolved]

NARRATIVE: CASE EVENT DATE: 202105
